FAERS Safety Report 14673537 (Version 1)
Quarter: 2018Q1

REPORT INFORMATION
  Report Type: Spontaneous
  Country: US (occurrence: US)
  Receive Date: 20180323
  Receipt Date: 20180323
  Transmission Date: 20180509
  Serious: Yes (Hospitalization, Other)
  Sender: FDA-Public Use
  Company Number: US-AUROBINDO-AUR-APL-2018-015596

PATIENT
  Age: 53 Year
  Sex: Female

DRUGS (1)
  1. MELOXICAM. [Suspect]
     Active Substance: MELOXICAM
     Indication: BACK PAIN
     Dosage: ()

REACTIONS (3)
  - Ischaemic gastritis [Unknown]
  - Gastric mucosal hypertrophy [Unknown]
  - Gastric ulcer [Unknown]
